FAERS Safety Report 10283022 (Version 3)
Quarter: 2014Q4

REPORT INFORMATION
  Report Type: Spontaneous
  Country: JP (occurrence: JP)
  Receive Date: 20140708
  Receipt Date: 20141226
  Transmission Date: 20150528
  Serious: Yes (Other)
  Sender: FDA-Public Use
  Company Number: JP-009507513-1407JPN002663

PATIENT
  Age: 75 Year
  Sex: Female

DRUGS (1)
  1. BONALON [Suspect]
     Active Substance: ALENDRONATE SODIUM
     Indication: OSTEOPOROSIS
     Dosage: DAILY DOSAGE UNKNOWN, START DATE: 99 MONTHS
     Route: 048

REACTIONS (3)
  - Atypical femur fracture [Unknown]
  - Intramedullary rod insertion [Unknown]
  - Osteosynthesis [Unknown]
